FAERS Safety Report 15761413 (Version 3)
Quarter: 2019Q1

REPORT INFORMATION
  Report Type: Spontaneous
  Country: FR (occurrence: FR)
  Receive Date: 20181226
  Receipt Date: 20190218
  Transmission Date: 20190417
  Serious: Yes (Hospitalization, Disabling, Other)
  Sender: FDA-Public Use
  Company Number: FR-MYLANLABS-2018M1095407

PATIENT
  Sex: Female

DRUGS (10)
  1. CYPROTERONE [Suspect]
     Active Substance: CYPROTERONE
     Indication: ALOPECIA
     Dosage: 0.5 DOSAGE FORM, QD
     Route: 048
     Dates: start: 20161124
  2. CYPROTERONE [Suspect]
     Active Substance: CYPROTERONE
     Dosage: 0.5 DOSAGE FORM, QD
     Route: 048
     Dates: start: 2008
  3. CYPROTERONE [Suspect]
     Active Substance: CYPROTERONE
     Dosage: 0.5 DOSAGE FORM, QD
     Route: 048
     Dates: start: 20140818
  4. CYPROTERONE [Suspect]
     Active Substance: CYPROTERONE
     Indication: ACNE
     Dosage: 0.5 DOSAGE FORM, QD
     Route: 048
     Dates: start: 20170920
  5. CYPROTERONE [Suspect]
     Active Substance: CYPROTERONE
     Dosage: 0.5 DOSAGE FORM, QD
     Route: 048
     Dates: start: 20130816
  6. CYPROTERONE [Suspect]
     Active Substance: CYPROTERONE
     Dosage: 0.5 UNK(? TABLET/D FOR 21 DAYS PER MONTH)
     Route: 048
     Dates: start: 20070528, end: 20170920
  7. ESTRADIOL. [Suspect]
     Active Substance: ESTRADIOL
     Indication: PRODUCT USED FOR UNKNOWN INDICATION
     Dosage: 1 DOSAGE FORM, QD 1 TABLET/D FOR 21 DAYS PER MONTH
     Route: 048
     Dates: start: 2008, end: 20170920
  8. CYPROTERONE [Suspect]
     Active Substance: CYPROTERONE
     Dosage: QD (1/2 TABLET FOR 1 DAYS PER MONTH)
     Dates: start: 20090605
  9. CYPROTERONE [Suspect]
     Active Substance: CYPROTERONE
     Dosage: 0.5 DOSAGE FORM, QD
     Route: 048
     Dates: start: 20100820
  10. CYPROTERONE [Suspect]
     Active Substance: CYPROTERONE
     Dosage: 2.5 DOSAGE FORM, QD (? TABLET/D FOR 21 DAYS PER MONTH)
     Dates: start: 2007

REACTIONS (20)
  - Language disorder [Unknown]
  - Hemiparaesthesia [Not Recovered/Not Resolved]
  - Eye haematoma [Unknown]
  - Disorientation [Unknown]
  - Gait disturbance [Not Recovered/Not Resolved]
  - Paraesthesia [Not Recovered/Not Resolved]
  - Diplopia [Not Recovered/Not Resolved]
  - Cognitive disorder [Unknown]
  - Coordination abnormal [Not Recovered/Not Resolved]
  - Dysarthria [Not Recovered/Not Resolved]
  - Weight increased [Not Recovered/Not Resolved]
  - Memory impairment [Unknown]
  - Nervous system disorder [Unknown]
  - Aphasia [Unknown]
  - Hemiplegia [Not Recovered/Not Resolved]
  - Balance disorder [Not Recovered/Not Resolved]
  - Meningioma [Not Recovered/Not Resolved]
  - Fatigue [Not Recovered/Not Resolved]
  - Muscular weakness [Not Recovered/Not Resolved]
  - Facial paralysis [Not Recovered/Not Resolved]

NARRATIVE: CASE EVENT DATE: 2017
